FAERS Safety Report 22386618 (Version 1)
Quarter: 2023Q2

REPORT INFORMATION
  Report Type: Report from Study
  Country: MX (occurrence: MX)
  Receive Date: 20230531
  Receipt Date: 20230531
  Transmission Date: 20230722
  Serious: Yes (Other)
  Sender: FDA-Public Use
  Company Number: MX-AMGEN-MEXSL2023092300

PATIENT
  Sex: Male

DRUGS (1)
  1. BLINCYTO [Suspect]
     Active Substance: BLINATUMOMAB
     Indication: Acute lymphocytic leukaemia recurrent
     Dosage: 28 MICROGRAM, 28DAYS
     Route: 065
     Dates: start: 20230522

REACTIONS (4)
  - Thrombocytopenia [Unknown]
  - Hypokalaemia [Unknown]
  - Tachycardia [Unknown]
  - Hypotension [Unknown]
